FAERS Safety Report 10160247 (Version 2)
Quarter: 2014Q2

REPORT INFORMATION
  Report Type: Report from Study
  Country: DE (occurrence: DE)
  Receive Date: 20140508
  Receipt Date: 20140508
  Transmission Date: 20141212
  Serious: Yes (Hospitalization)
  Sender: FDA-Public Use
  Company Number: DE-CELGENEUS-062-10004-13063890

PATIENT
  Age: 50 Year
  Sex: Male
  Weight: 113.3 kg

DRUGS (4)
  1. CC-10004 [Suspect]
     Indication: PSORIASIS
     Dosage: 60 MILLIGRAM
     Route: 048
     Dates: start: 20110624
  2. CC-10004 [Suspect]
     Dosage: 60 MILLIGRAM
     Route: 048
     Dates: start: 20111018, end: 20130520
  3. ALLOPURINOL [Concomitant]
     Indication: HYPERURICAEMIA
     Dosage: 100 MILLIGRAM
     Route: 048
     Dates: start: 20130525
  4. METFORMIN [Concomitant]
     Indication: DIABETES MELLITUS
     Route: 065
     Dates: start: 20110710, end: 201205

REACTIONS (2)
  - Appendicitis [Recovered/Resolved]
  - Diverticular perforation [Recovered/Resolved]
